FAERS Safety Report 11702334 (Version 1)
Quarter: 2015Q4

REPORT INFORMATION
  Report Type: Spontaneous
  Country: US (occurrence: US)
  Receive Date: 20151105
  Receipt Date: 20151105
  Transmission Date: 20160304
  Serious: Yes (Death)
  Sender: FDA-Public Use
  Company Number: US-BEDFORD LABORATORIES-2015BV000099

PATIENT
  Age: 48 Year
  Sex: Male

DRUGS (1)
  1. NOREPINEPHRINE BITARTRATE. [Suspect]
     Active Substance: NOREPINEPHRINE BITARTRATE
     Dosage: UNK
     Route: 042
     Dates: start: 2001

REACTIONS (7)
  - Cardiotoxicity [Fatal]
  - Fatigue [None]
  - Presyncope [None]
  - Arrhythmia [Fatal]
  - Acute coronary syndrome [Fatal]
  - Cardiac arrest [None]
  - Device occlusion [None]
